FAERS Safety Report 25636973 (Version 2)
Quarter: 2025Q3

REPORT INFORMATION
  Report Type: Spontaneous
  Country: EU (occurrence: EU)
  Receive Date: 20250804
  Receipt Date: 20250818
  Transmission Date: 20251021
  Serious: Yes (Hospitalization)
  Sender: JOHNSON AND JOHNSON
  Company Number: EU-JNJFOC-20250802375

PATIENT
  Age: 76 Year
  Sex: Male
  Weight: 100 kg

DRUGS (4)
  1. XARELTO [Suspect]
     Active Substance: RIVAROXABAN
     Indication: Atrial fibrillation
  2. XARELTO [Suspect]
     Active Substance: RIVAROXABAN
     Indication: Myocardial infarction
  3. XARELTO [Suspect]
     Active Substance: RIVAROXABAN
     Indication: Arrhythmia
  4. ASPIRIN [Concomitant]
     Active Substance: ASPIRIN
     Indication: Product used for unknown indication

REACTIONS (2)
  - Transient ischaemic attack [Recovered/Resolved]
  - Overweight [Unknown]

NARRATIVE: CASE EVENT DATE: 20250324
